FAERS Safety Report 7627875-7 (Version None)
Quarter: 2011Q3

REPORT INFORMATION
  Report Type: 
  Country: None (occurrence: None)
  Receive Date: 20110721
  Receipt Date: 20110715
  Transmission Date: 20111222
  Serious: Yes (Other)
  Sender: FDA-Public Use
  Company Number: CA-MERCK-1107USA02369

PATIENT
  Age: 29 Year
  Sex: Male

DRUGS (2)
  1. PROSCAR [Suspect]
     Route: 048
  2. NAPROSYN [Suspect]
     Route: 048

REACTIONS (1)
  - UVEITIS [None]
